FAERS Safety Report 6788642-X (Version None)
Quarter: 2010Q2

REPORT INFORMATION
  Report Type: 
  Country: None (occurrence: None)
  Receive Date: 20100623
  Receipt Date: 20080410
  Transmission Date: 20101027
  Serious: No
  Sender: FDA-Public Use
  Company Number: US-PFIZER INC-2008032011

PATIENT
  Sex: Male

DRUGS (1)
  1. GEODON [Suspect]
     Dates: start: 20080401

REACTIONS (2)
  - FATIGUE [None]
  - SOMNOLENCE [None]
